FAERS Safety Report 10629797 (Version 1)
Quarter: 2014Q4

REPORT INFORMATION
  Report Type: Spontaneous
  Country: US (occurrence: US)
  Receive Date: 20141205
  Receipt Date: 20141205
  Transmission Date: 20150529
  Serious: No
  Sender: FDA-Public Use
  Company Number: US-BRISTOL-MYERS SQUIBB COMPANY-20734174

PATIENT
  Age: 54 Year
  Sex: Female
  Weight: 76.64 kg

DRUGS (1)
  1. BYETTA [Suspect]
     Active Substance: EXENATIDE
     Dosage: INCREASED TO 10 MCG
     Route: 058

REACTIONS (2)
  - Weight decreased [Unknown]
  - Nausea [Unknown]
